FAERS Safety Report 6499072-2 (Version None)
Quarter: 2009Q4

REPORT INFORMATION
  Report Type: 
  Country: None (occurrence: None)
  Receive Date: 20091215
  Receipt Date: 20091201
  Transmission Date: 20100525
  Serious: Yes (Other)
  Sender: FDA-Public Use
  Company Number: GB-MYLANLABS-2009S1015649

PATIENT
  Age: 8 Year
  Sex: Female
  Weight: 9.4 kg

DRUGS (2)
  1. AZATHIOPRINE [Suspect]
     Indication: SECONDARY IMMUNODEFICIENCY
     Dates: start: 19950101
  2. CYCLOSPORINE [Suspect]
     Indication: SECONDARY IMMUNODEFICIENCY
     Dates: start: 19950101

REACTIONS (2)
  - EPSTEIN-BARR VIRUS ASSOCIATED LYMPHOPROLIFERATIVE DISORDER [None]
  - RESPIRATORY DISTRESS [None]
